FAERS Safety Report 11153209 (Version 2)
Quarter: 2015Q2

REPORT INFORMATION
  Report Type: Spontaneous
  Country: CH (occurrence: CH)
  Receive Date: 20150601
  Receipt Date: 20150604
  Transmission Date: 20150821
  Serious: Yes (Death)
  Sender: FDA-Public Use
  Company Number: PHHY2015CH064586

PATIENT

DRUGS (1)
  1. SANDOSTATIN [Suspect]
     Active Substance: OCTREOTIDE ACETATE
     Indication: NAUSEA
     Dosage: 300 UG, QD
     Route: 058

REACTIONS (3)
  - Injection site pain [Unknown]
  - Off label use [Unknown]
  - Pancreatic carcinoma [Fatal]
